FAERS Safety Report 21415347 (Version 1)
Quarter: 2022Q4

REPORT INFORMATION
  Report Type: Spontaneous
  Country: FR (occurrence: FR)
  Receive Date: 20221006
  Receipt Date: 20221006
  Transmission Date: 20230112
  Serious: Yes (Life-Threatening)
  Sender: FDA-Public Use
  Company Number: FR-AFSSAPS-PS20221875

PATIENT
  Age: 23 Year
  Sex: Female
  Weight: 95 kg

DRUGS (2)
  1. LIDOCAINE [Suspect]
     Active Substance: LIDOCAINE
     Indication: Induction of anaesthesia
     Dosage: 20 MILLIGRAM
     Route: 042
     Dates: start: 20220506, end: 20220506
  2. ATRACURIUM [Suspect]
     Active Substance: ATRACURIUM
     Indication: Induction of anaesthesia
     Dosage: 40 MILLIGRAM, DAILY
     Route: 042
     Dates: start: 20220506, end: 20220506

REACTIONS (1)
  - Bronchospasm [Recovered/Resolved]

NARRATIVE: CASE EVENT DATE: 20220506
